FAERS Safety Report 6064706-3 (Version None)
Quarter: 2009Q1

REPORT INFORMATION
  Report Type: 
  Country: None (occurrence: None)
  Receive Date: 20090204
  Receipt Date: 20080710
  Transmission Date: 20090719
  Serious: No
  Sender: FDA-Public Use
  Company Number: A0736956A

PATIENT
  Sex: Male

DRUGS (3)
  1. ARIXTRA [Suspect]
     Dosage: 2.5MG PER DAY
     Route: 058
  2. PLAVIX [Concomitant]
  3. ASPIRIN [Concomitant]

REACTIONS (1)
  - INJECTION SITE HAEMORRHAGE [None]
